FAERS Safety Report 6310834-4 (Version None)
Quarter: 2009Q3

REPORT INFORMATION
  Report Type: 
  Country: None (occurrence: None)
  Receive Date: 20090812
  Receipt Date: 20090724
  Transmission Date: 20100115
  Serious: Yes (Other)
  Sender: FDA-Public Use
  Company Number: 2009US-22150

PATIENT
  Age: 30 Year
  Sex: Female

DRUGS (3)
  1. ISOTRETINOIN [Suspect]
     Indication: DRUG USE FOR UNKNOWN INDICATION
     Dosage: 20 MG, ORAL
     Route: 048
     Dates: start: 20080825
  2. ISOTRETINOIN [Suspect]
     Indication: DRUG USE FOR UNKNOWN INDICATION
     Dosage: 40 MG, TID, ORAL
     Route: 048
     Dates: start: 20080825, end: 20090223
  3. UNKNOWN MEDICATION (UNKNOWN MEDICATION) [Suspect]
     Indication: ABORTION INDUCED
     Dates: start: 20090227, end: 20090228

REACTIONS (6)
  - ABORTION INDUCED [None]
  - BREAST TENDERNESS [None]
  - DRUG EXPOSURE DURING PREGNANCY [None]
  - NASOPHARYNGITIS [None]
  - NAUSEA [None]
  - PREGNANCY WITH CONTRACEPTIVE DEVICE [None]
